FAERS Safety Report 9983769 (Version 2)
Quarter: 2014Q1

REPORT INFORMATION
  Report Type: Spontaneous
  Country: CA (occurrence: CA)
  Receive Date: 20140307
  Receipt Date: 20140312
  Transmission Date: 20141002
  Serious: Yes (Other)
  Sender: FDA-Public Use
  Company Number: CA-GLAXOSMITHKLINE-A1063166A

PATIENT
  Age: 54 Year
  Sex: Male

DRUGS (2)
  1. AVODART [Suspect]
     Indication: BENIGN PROSTATIC HYPERPLASIA
     Dosage: 1CAP PER DAY
     Route: 065
     Dates: start: 20140214, end: 20140303
  2. TAMSULOSIN [Suspect]
     Indication: PRODUCT USED FOR UNKNOWN INDICATION
     Route: 065

REACTIONS (13)
  - Eye swelling [Unknown]
  - Ocular hyperaemia [Unknown]
  - Vision blurred [Unknown]
  - Back pain [Unknown]
  - Headache [Unknown]
  - Iritis [Unknown]
  - Iris adhesions [Unknown]
  - Eyelid oedema [Unknown]
  - Visual acuity reduced [Unknown]
  - Anterior chamber cell [Unknown]
  - Tongue ulceration [Unknown]
  - Hypopyon [Unknown]
  - Anterior chamber flare [Unknown]
